FAERS Safety Report 19573443 (Version 1)
Quarter: 2021Q3

REPORT INFORMATION
  Report Type: Spontaneous
  Country: US (occurrence: US)
  Receive Date: 20210717
  Receipt Date: 20210717
  Transmission Date: 20211014
  Serious: Yes (Death, Hospitalization)
  Sender: FDA-Public Use
  Company Number: US-SPECGX-T202101682

PATIENT
  Age: 55 Year
  Sex: Male

DRUGS (11)
  1. MORPHINE [Suspect]
     Active Substance: MORPHINE
     Indication: PAIN
     Dosage: 30 MILLIGRAM, BID (CONTROLLED RELEASE)
     Route: 048
  2. MORPHINE [Suspect]
     Active Substance: MORPHINE
     Dosage: 10 MILLIGRAM PER HR
     Route: 042
  3. METHADONE [Suspect]
     Active Substance: METHADONE HYDROCHLORIDE
     Dosage: 35 MILLIGRAM, Q6H
     Route: 048
  4. MORPHINE [Suspect]
     Active Substance: MORPHINE
     Dosage: 10 MILLIGRAM, EVERY 15 MINUTES
     Route: 048
  5. MORPHINE [Suspect]
     Active Substance: MORPHINE
     Dosage: TAPERED
     Route: 042
  6. MORPHINE [Suspect]
     Active Substance: MORPHINE
     Indication: PAIN
     Dosage: 30 MILLIGRAM, Q4H (IMMEDIATE?RELEASE RESCUE DOSE)
     Route: 048
  7. MORPHINE [Suspect]
     Active Substance: MORPHINE
     Dosage: 160 MILLIGRAM PER HR
     Route: 042
  8. METHADONE [Suspect]
     Active Substance: METHADONE HYDROCHLORIDE
     Indication: DRUG WITHDRAWAL MAINTENANCE THERAPY
     Dosage: 100 MILLIGRAM, QD
     Route: 048
  9. MORPHINE [Suspect]
     Active Substance: MORPHINE
     Indication: PAIN
     Dosage: 30 MILLIGRAM, Q3H
     Route: 042
  10. METHADONE [Suspect]
     Active Substance: METHADONE HYDROCHLORIDE
     Dosage: 100 MILLIGRAM, Q6H
     Route: 048
  11. MORPHINE [Suspect]
     Active Substance: MORPHINE
     Dosage: 80 MILLIGRAM PER HR
     Route: 042

REACTIONS (4)
  - Death [Fatal]
  - Humerus fracture [Unknown]
  - Bone giant cell tumour [Unknown]
  - Injury [Unknown]
